FAERS Safety Report 9726797 (Version 4)
Quarter: 2014Q1

REPORT INFORMATION
  Report Type: Spontaneous
  Country: VE (occurrence: VE)
  Receive Date: 20131203
  Receipt Date: 20140130
  Transmission Date: 20141002
  Serious: Yes (Hospitalization, Other)
  Sender: FDA-Public Use
  Company Number: PHHY2013VE136191

PATIENT
  Age: 66 Year
  Sex: Female

DRUGS (9)
  1. FORADIL [Suspect]
     Indication: DYSPNOEA
     Dosage: 24 UG, DAILY
     Route: 055
     Dates: end: 20131113
  2. FORADIL [Suspect]
     Indication: OFF LABEL USE
  3. MIFLONIDE [Suspect]
     Indication: DYSPNOEA
     Dosage: 400 UG, DAILY
     Route: 055
     Dates: end: 20131118
  4. MIFLONIDE [Suspect]
     Indication: OFF LABEL USE
     Dosage: 400 UG, DAILY
     Route: 055
     Dates: start: 201311, end: 20131118
  5. ENALAPRIL [Concomitant]
     Indication: HYPERTENSION
     Dosage: 20 MG, UNK
     Route: 048
  6. CLONIDINA [Concomitant]
     Dosage: 125 MG, UNK
     Route: 048
  7. ALPRAZOLAM [Concomitant]
     Indication: DEPRESSION
     Dosage: 0.5 MG, UNK
     Route: 048
  8. CLOPID [Concomitant]
     Dosage: 75 MG, UNK
     Route: 048
  9. MICROSER FORTE [Concomitant]
     Indication: LABYRINTHITIS
     Dosage: 16 MG, UNK
     Route: 048

REACTIONS (6)
  - Respiratory arrest [Not Recovered/Not Resolved]
  - Hypokinesia [Not Recovered/Not Resolved]
  - Bronchitis [Recovered/Resolved]
  - Back pain [Recovered/Resolved]
  - Cough [Recovered/Resolved]
  - Dyspnoea [Recovering/Resolving]
